FAERS Safety Report 22070631 (Version 2)
Quarter: 2023Q2

REPORT INFORMATION
  Report Type: Spontaneous
  Country: US (occurrence: US)
  Receive Date: 20230307
  Receipt Date: 20230412
  Transmission Date: 20230722
  Serious: Yes (Hospitalization)
  Sender: FDA-Public Use
  Company Number: US-AMGEN-USASP2023037523

PATIENT
  Age: 79 Year
  Sex: Female
  Weight: 72.562 kg

DRUGS (2)
  1. NEULASTA [Suspect]
     Active Substance: PEGFILGRASTIM
     Indication: Neutropenia
     Dosage: UNK
     Route: 065
  2. NEULASTA [Suspect]
     Active Substance: PEGFILGRASTIM
     Dosage: UNK
     Route: 065

REACTIONS (4)
  - Myalgia [Unknown]
  - Wrong technique in product usage process [Unknown]
  - Device issue [Unknown]
  - Bone pain [Unknown]

NARRATIVE: CASE EVENT DATE: 20230201
